FAERS Safety Report 20045494 (Version 6)
Quarter: 2023Q2

REPORT INFORMATION
  Report Type: Spontaneous
  Country: US (occurrence: US)
  Receive Date: 20211108
  Receipt Date: 20230615
  Transmission Date: 20230722
  Serious: Yes (Other)
  Sender: FDA-Public Use
  Company Number: US-PFIZER INC-202101529177

PATIENT
  Age: 74 Year
  Sex: Female

DRUGS (1)
  1. XELJANZ XR [Suspect]
     Active Substance: TOFACITINIB CITRATE
     Dosage: 11 MG, 1X/DAY (TAKE 1 TABLET (11 MG) BY MOUTH ONCE DAILY)
     Route: 048

REACTIONS (7)
  - Neoplasm malignant [Unknown]
  - Herpes zoster [Unknown]
  - Illness [Unknown]
  - Urinary tract infection [Unknown]
  - Gait inability [Unknown]
  - Pain in extremity [Unknown]
  - Arthritis [Unknown]
